FAERS Safety Report 5192112-2 (Version None)
Quarter: 2006Q4

REPORT INFORMATION
  Report Type: 
  Country: None (occurrence: None)
  Receive Date: 20061220
  Receipt Date: 20061208
  Transmission Date: 20070319
  Serious: Yes (Hospitalization)
  Sender: FDA-Public Use
  Company Number: 222863

PATIENT
  Age: 70 Year
  Sex: Male
  Weight: 61 kg

DRUGS (5)
  1. AVASTIN [Suspect]
     Indication: HEPATIC NEOPLASM MALIGNANT
     Dosage: 487.5 MG, Q3W, INTRAVENOUS
     Route: 042
     Dates: start: 20051220
  2. CAPECITABINE (CAPECITABINE) [Suspect]
     Indication: HEPATIC NEOPLASM MALIGNANT
     Dosage: 2750 MG, ORAL
     Route: 048
     Dates: start: 20051220
  3. CONCOMITANT DRUG (GENERIC COMPONENT (S)) [Concomitant]
  4. SPASMO-EUVERNIL (PHENAZOPYRIDINE HYDROCHLORIDE, SULFACARBAMIDE) [Concomitant]
  5. SLOW-K [Concomitant]

REACTIONS (6)
  - DYSURIA [None]
  - GASTRIC ULCER HAEMORRHAGE [None]
  - GASTROOESOPHAGEAL REFLUX DISEASE [None]
  - HAEMOGLOBIN DECREASED [None]
  - MELAENA [None]
  - PROSTATE EXAMINATION ABNORMAL [None]
